FAERS Safety Report 9633601 (Version 2)
Quarter: 2013Q4

REPORT INFORMATION
  Report Type: Report from Study
  Country: AR (occurrence: AR)
  Receive Date: 20131021
  Receipt Date: 20131127
  Transmission Date: 20140711
  Serious: Yes (Other)
  Sender: FDA-Public Use
  Company Number: PHHY2013AR117815

PATIENT
  Age: 85 Year
  Sex: Female

DRUGS (4)
  1. EXFORGE [Suspect]
     Indication: HYPERTENSION
     Dosage: 1 DF (80/5 MG), DAILY
     Route: 048
     Dates: start: 20130712
  2. LORAZEPAM [Concomitant]
     Dosage: UNK UKN, UNK
  3. NAPROXEN [Concomitant]
     Dosage: UNK UKN, UNK
  4. ATENOLOL [Concomitant]
     Dosage: 50 MG, UNK

REACTIONS (4)
  - Breast mass [Recovering/Resolving]
  - Local swelling [Not Recovered/Not Resolved]
  - Chest pain [Unknown]
  - Cough [Not Recovered/Not Resolved]
